FAERS Safety Report 23798281 (Version 1)
Quarter: 2024Q2

REPORT INFORMATION
  Report Type: Spontaneous
  Country: SE (occurrence: SE)
  Receive Date: 20240430
  Receipt Date: 20240430
  Transmission Date: 20240716
  Serious: Yes (Hospitalization, Other)
  Sender: FDA-Public Use
  Company Number: None

PATIENT
  Age: 78 Year
  Sex: Male

DRUGS (1)
  1. ELIQUIS [Suspect]
     Active Substance: APIXABAN
     Indication: Product used for unknown indication
     Dates: end: 202403

REACTIONS (7)
  - Anaemia [Recovering/Resolving]
  - Gastrointestinal haemorrhage [Recovering/Resolving]
  - Decreased appetite [Recovering/Resolving]
  - Fatigue [Recovering/Resolving]
  - Diverticulum [Recovering/Resolving]
  - Vomiting [Recovering/Resolving]
  - Gastric ulcer [Recovering/Resolving]

NARRATIVE: CASE EVENT DATE: 20240301
